FAERS Safety Report 21760721 (Version 1)
Quarter: 2022Q4

REPORT INFORMATION
  Report Type: Spontaneous
  Country: US (occurrence: None)
  Receive Date: 20221220
  Receipt Date: 20221220
  Transmission Date: 20230112
  Serious: No
  Sender: FDA-Public Use
  Company Number: None

PATIENT
  Age: 76 Year
  Sex: Male

DRUGS (1)
  1. SEMAGLUTIDE [Suspect]
     Active Substance: SEMAGLUTIDE
     Indication: Diabetes mellitus
     Dosage: 1 MG QWEEK
     Dates: start: 20220131, end: 20221212

REACTIONS (3)
  - Pemphigoid [None]
  - Dermatitis [None]
  - Rash pruritic [None]

NARRATIVE: CASE EVENT DATE: 20221123
